FAERS Safety Report 17879404 (Version 2)
Quarter: 2020Q2

REPORT INFORMATION
  Report Type: Spontaneous
  Country: DE (occurrence: DE)
  Receive Date: 20200610
  Receipt Date: 20200627
  Transmission Date: 20200714
  Serious: Yes (Death, Hospitalization)
  Sender: FDA-Public Use
  Company Number: NVSC2020DE160869

PATIENT
  Sex: Male
  Weight: 54 kg

DRUGS (5)
  1. PACLITAXEL. [Concomitant]
     Active Substance: PACLITAXEL
     Indication: NON-SMALL CELL LUNG CANCER
     Dosage: 230 MG, UNKNOWN
     Route: 042
     Dates: start: 20200205
  2. CARBOPLATIN. [Concomitant]
     Active Substance: CARBOPLATIN
     Dosage: 455 MG, UNKNOWN
     Route: 065
     Dates: start: 20200304
  3. PACLITAXEL. [Concomitant]
     Active Substance: PACLITAXEL
     Dosage: 230 MG, UNKNOWN
     Route: 042
     Dates: start: 20200304
  4. PEGFILGRASTIM [Suspect]
     Active Substance: PEGFILGRASTIM
     Indication: PRODUCT USED FOR UNKNOWN INDICATION
     Dosage: 6 MG, UNKNOWN
     Route: 058
     Dates: start: 20200305
  5. CARBOPLATIN. [Concomitant]
     Active Substance: CARBOPLATIN
     Indication: NON-SMALL CELL LUNG CANCER
     Dosage: 455 MG, UNKNOWN
     Route: 065
     Dates: start: 20200205

REACTIONS (2)
  - Circulatory collapse [Unknown]
  - Death [Fatal]

NARRATIVE: CASE EVENT DATE: 20200325
